FAERS Safety Report 6851740-6 (Version None)
Quarter: 2010Q3

REPORT INFORMATION
  Report Type: 
  Country: None (occurrence: None)
  Receive Date: 20100717
  Receipt Date: 20071029
  Transmission Date: 20110219
  Serious: Yes (Other)
  Sender: FDA-Public Use
  Company Number: US-PFIZER INC-2007092537

PATIENT
  Sex: Male

DRUGS (5)
  1. CHANTIX [Suspect]
     Indication: SMOKING CESSATION THERAPY
     Dates: start: 20071001, end: 20071001
  2. ALBUTEROL [Suspect]
  3. NITROGLYCERIN [Concomitant]
  4. VICODIN [Concomitant]
     Indication: MUSCLE STRAIN
  5. ANTIHYPERTENSIVES [Concomitant]

REACTIONS (3)
  - ANXIETY [None]
  - CHEST DISCOMFORT [None]
  - DYSPEPSIA [None]
